FAERS Safety Report 7397601-8 (Version None)
Quarter: 2011Q2

REPORT INFORMATION
  Report Type: 
  Country: None (occurrence: None)
  Receive Date: 20110406
  Receipt Date: 20110329
  Transmission Date: 20111010
  Serious: Yes (Hospitalization)
  Sender: FDA-Public Use
  Company Number: US-MERCK-1008USA00877

PATIENT
  Age: 64 Year
  Sex: Male

DRUGS (10)
  1. KETOCONAZOLE [Suspect]
     Indication: PROSTATE CANCER RECURRENT
     Route: 048
     Dates: start: 20090101
  2. FENOFIBRATE [Concomitant]
     Indication: DYSLIPIDAEMIA
     Route: 048
     Dates: end: 20090314
  3. VYTORIN [Suspect]
     Route: 048
     Dates: end: 20090314
  4. PREDNISONE [Concomitant]
     Indication: PROSTATE CANCER
     Route: 048
     Dates: start: 20090101
  5. VERAPAMIL [Concomitant]
     Route: 048
  6. LEVOTHYROXINE SODIUM [Concomitant]
     Route: 048
  7. LEUPROLIDE ACETATE [Concomitant]
     Indication: PROSTATE CANCER
     Route: 030
     Dates: start: 20030101, end: 20060101
  8. ZOCOR [Suspect]
     Indication: DYSLIPIDAEMIA
     Route: 048
  9. KETOCONAZOLE [Suspect]
     Route: 048
     Dates: start: 20090201, end: 20090314
  10. LEUPROLIDE ACETATE [Concomitant]
     Route: 030
     Dates: start: 20070701

REACTIONS (3)
  - RHABDOMYOLYSIS [None]
  - RENAL FAILURE ACUTE [None]
  - DRUG INTERACTION [None]
